FAERS Safety Report 4449457-0 (Version None)
Quarter: 2004Q3

REPORT INFORMATION
  Report Type: 
  Country: None (occurrence: None)
  Receive Date: 20040909
  Receipt Date: 20040823
  Transmission Date: 20050211
  Serious: Yes (Death, Hospitalization, Other)
  Sender: FDA-Public Use
  Company Number: USA040773297

PATIENT
  Age: 30 Year
  Sex: Female
  Weight: 96 kg

DRUGS (4)
  1. PROZAC [Suspect]
     Indication: MAJOR DEPRESSION
     Dosage: 60 MG DAY
  2. CLONAZEPAM [Concomitant]
  3. SEROQUEL [Concomitant]
  4. MAXALT [Concomitant]

REACTIONS (10)
  - ACCIDENTAL OVERDOSE [None]
  - ARTHRALGIA [None]
  - DISCOMFORT [None]
  - DRUG LEVEL ABOVE THERAPEUTIC [None]
  - DRUG TOXICITY [None]
  - DYSPNOEA EXERTIONAL [None]
  - GASTRIC BYPASS [None]
  - MEDICATION ERROR [None]
  - TEMPOROMANDIBULAR JOINT SYNDROME [None]
  - WEIGHT DECREASED [None]
